FAERS Safety Report 8516834-8 (Version None)
Quarter: 2012Q3

REPORT INFORMATION
  Report Type: 
  Country: None (occurrence: None)
  Receive Date: 20120718
  Receipt Date: 20120704
  Transmission Date: 20120928
  Serious: Yes (Other)
  Sender: FDA-Public Use
  Company Number: SA-MYLANLABS-2012S1013896

PATIENT
  Age: 33 Year
  Sex: Female

DRUGS (3)
  1. LEVETIRACETAM [Suspect]
     Indication: PARTIAL SEIZURES
     Dosage: 500MG DAILY
     Route: 065
  2. PHENYTOIN SODIUM [Concomitant]
     Indication: PARTIAL SEIZURES
  3. LAMOTRIGINE [Concomitant]
     Indication: PARTIAL SEIZURES

REACTIONS (3)
  - HYPERSENSITIVITY [None]
  - ANGIOEDEMA [None]
  - RASH MACULO-PAPULAR [None]
